FAERS Safety Report 8141722-9 (Version None)
Quarter: 2012Q1

REPORT INFORMATION
  Report Type: 
  Country: None (occurrence: None)
  Receive Date: 20120216
  Receipt Date: 20120210
  Transmission Date: 20120608
  Serious: Yes (Other)
  Sender: FDA-Public Use
  Company Number: PHHY2012MX012397

PATIENT
  Sex: Female

DRUGS (1)
  1. TEGRETOL [Suspect]
     Indication: EPILEPSY
     Dosage: 2 TABLETS (400 MG) PER DAY
     Dates: start: 19980101

REACTIONS (6)
  - INNER EAR INFLAMMATION [None]
  - HEADACHE [None]
  - TINNITUS [None]
  - BALANCE DISORDER [None]
  - FALL [None]
  - VIITH NERVE PARALYSIS [None]
